FAERS Safety Report 24039262 (Version 1)
Quarter: 2024Q3

REPORT INFORMATION
  Report Type: Spontaneous
  Country: US (occurrence: US)
  Receive Date: 20240702
  Receipt Date: 20240702
  Transmission Date: 20241016
  Serious: No
  Sender: SANDOZ
  Company Number: US-SANDOZ-SDZ2024US061859

PATIENT
  Age: 51 Year
  Sex: Female

DRUGS (1)
  1. COMBIPATCH [Suspect]
     Active Substance: ESTRADIOL\NORETHINDRONE ACETATE
     Indication: Postmenopause
     Dosage: 0.05/0.14 MG
     Route: 062
     Dates: start: 2015

REACTIONS (2)
  - Exposure via direct contact [Recovered/Resolved]
  - Product storage error [Not Recovered/Not Resolved]
